FAERS Safety Report 7656948-8 (Version None)
Quarter: 2011Q3

REPORT INFORMATION
  Report Type: 
  Country: None (occurrence: None)
  Receive Date: 20110802
  Receipt Date: 20110719
  Transmission Date: 20111222
  Serious: Yes (Other)
  Sender: FDA-Public Use
  Company Number: AUR-APL-2010-02456

PATIENT
  Age: 49 Year
  Sex: Female

DRUGS (6)
  1. AMISULPRIDE (AMISULPRIDE, AMISULPRIDE) [Suspect]
     Indication: SCHIZOPHRENIA
     Dosage: ORAL, ORAL
     Route: 048
     Dates: end: 20100801
  2. LAMOTRIGINE [Suspect]
     Indication: CONVULSION
     Dates: end: 20100801
  3. RAMIPRIL [Concomitant]
  4. CLOZARIL [Suspect]
     Indication: SCHIZOPHRENIA
     Dosage: ORAL
     Route: 048
     Dates: start: 20050207
  5. PAROXETINE HCL [Concomitant]
  6. TEMAZEPAM [Concomitant]

REACTIONS (10)
  - MENTAL IMPAIRMENT [None]
  - BREAST CANCER FEMALE [None]
  - INFLUENZA LIKE ILLNESS [None]
  - ABSCESS [None]
  - GENERAL PHYSICAL HEALTH DETERIORATION [None]
  - NEUTROPHIL COUNT INCREASED [None]
  - BREAST ABSCESS [None]
  - METASTASES TO SPINE [None]
  - PLATELET COUNT DECREASED [None]
  - WHITE BLOOD CELL COUNT INCREASED [None]
